FAERS Safety Report 25374746 (Version 1)
Quarter: 2025Q2

REPORT INFORMATION
  Report Type: Spontaneous
  Country: SK (occurrence: SK)
  Receive Date: 20250529
  Receipt Date: 20250529
  Transmission Date: 20250716
  Serious: Yes (Other)
  Sender: MYLAN
  Company Number: SK-SANDOZ-SDZ2025SK031925

PATIENT
  Age: 60 Year
  Sex: Female

DRUGS (21)
  1. LENALIDOMIDE [Suspect]
     Active Substance: LENALIDOMIDE
     Indication: Plasma cell myeloma
  2. LENALIDOMIDE [Suspect]
     Active Substance: LENALIDOMIDE
     Route: 065
  3. LENALIDOMIDE [Suspect]
     Active Substance: LENALIDOMIDE
     Route: 065
  4. LENALIDOMIDE [Suspect]
     Active Substance: LENALIDOMIDE
  5. DEXAMETHASONE [Suspect]
     Active Substance: DEXAMETHASONE
     Indication: Plasma cell myeloma
  6. DEXAMETHASONE [Suspect]
     Active Substance: DEXAMETHASONE
     Route: 065
  7. DEXAMETHASONE [Suspect]
     Active Substance: DEXAMETHASONE
     Route: 065
  8. DEXAMETHASONE [Suspect]
     Active Substance: DEXAMETHASONE
  9. BORTEZOMIB [Suspect]
     Active Substance: BORTEZOMIB
     Indication: Plasma cell myeloma
  10. BORTEZOMIB [Suspect]
     Active Substance: BORTEZOMIB
     Route: 065
  11. BORTEZOMIB [Suspect]
     Active Substance: BORTEZOMIB
     Route: 065
  12. BORTEZOMIB [Suspect]
     Active Substance: BORTEZOMIB
  13. BORTEZOMIB [Suspect]
     Active Substance: BORTEZOMIB
     Indication: Plasma cell myeloma
  14. BORTEZOMIB [Suspect]
     Active Substance: BORTEZOMIB
     Route: 065
  15. BORTEZOMIB [Suspect]
     Active Substance: BORTEZOMIB
     Route: 065
  16. BORTEZOMIB [Suspect]
     Active Substance: BORTEZOMIB
  17. POMALIDOMIDE [Suspect]
     Active Substance: POMALIDOMIDE
  18. DEXAMETHASONE [Suspect]
     Active Substance: DEXAMETHASONE
  19. DARATUMUMAB [Suspect]
     Active Substance: DARATUMUMAB
  20. THALIDOMIDE [Suspect]
     Active Substance: THALIDOMIDE
  21. DEXAMETHASONE [Suspect]
     Active Substance: DEXAMETHASONE

REACTIONS (5)
  - Plasma cell myeloma refractory [Unknown]
  - Haematotoxicity [Unknown]
  - Spinal cord injury cervical [Unknown]
  - Neutropenia [Unknown]
  - Therapy partial responder [Unknown]
